FAERS Safety Report 5080074-8 (Version None)
Quarter: 2006Q3

REPORT INFORMATION
  Report Type: 
  Country: None (occurrence: None)
  Receive Date: 20060815
  Receipt Date: 20060814
  Transmission Date: 20061208
  Serious: Yes (Other)
  Sender: FDA-Public Use
  Company Number: PHNU2006DE02782

PATIENT
  Sex: Male

DRUGS (1)
  1. EXELON [Suspect]
     Route: 048

REACTIONS (1)
  - AGRANULOCYTOSIS [None]
